FAERS Safety Report 6222014-1 (Version None)
Quarter: 2009Q2

REPORT INFORMATION
  Report Type: 
  Country: None (occurrence: None)
  Receive Date: 20090609
  Receipt Date: 20090528
  Transmission Date: 20091009
  Serious: Yes (Hospitalization, Other)
  Sender: FDA-Public Use
  Company Number: 2009AP001996

PATIENT
  Age: 91 Year
  Sex: Male

DRUGS (2)
  1. CIPROFLOXACIN [Suspect]
     Indication: URINARY TRACT INFECTION
  2. LEVOFLOXACIN [Suspect]
     Indication: URINARY TRACT INFECTION

REACTIONS (6)
  - CEREBRAL ISCHAEMIA [None]
  - DEHYDRATION [None]
  - FALL [None]
  - HYPOGLYCAEMIA [None]
  - RENAL FAILURE ACUTE [None]
  - UNRESPONSIVE TO STIMULI [None]
